FAERS Safety Report 23120731 (Version 1)
Quarter: 2023Q4

REPORT INFORMATION
  Report Type: Spontaneous
  Country: US (occurrence: None)
  Receive Date: 20231029
  Receipt Date: 20231029
  Transmission Date: 20240110
  Serious: Yes (Other)
  Sender: FDA-Public Use
  Company Number: US-ENDO-CASE-0037163

PATIENT
  Sex: Female

DRUGS (1)
  1. PERCOCET [Suspect]
     Active Substance: ACETAMINOPHEN\OXYCODONE HYDROCHLORIDE

REACTIONS (7)
  - Drug withdrawal syndrome neonatal [Unknown]
  - Anxiety [Unknown]
  - Depression [Unknown]
  - Anger [Unknown]
  - Panic attack [Unknown]
  - Feeling jittery [Unknown]
  - Hyperhidrosis [Unknown]
